FAERS Safety Report 22307489 (Version 1)
Quarter: 2023Q2

REPORT INFORMATION
  Report Type: Report from Study
  Country: NL (occurrence: NL)
  Receive Date: 20230511
  Receipt Date: 20230511
  Transmission Date: 20230721
  Serious: Yes (Other)
  Sender: FDA-Public Use
  Company Number: NL-SUN PHARMACEUTICAL INDUSTRIES LTD-2023R1-387791

PATIENT
  Age: 25 Year
  Sex: Female

DRUGS (10)
  1. AMOXICILLIN [Suspect]
     Active Substance: AMOXICILLIN
     Indication: Netherton^s syndrome
     Dosage: UNK
     Route: 065
  2. CLARITHROMYCIN [Suspect]
     Active Substance: CLARITHROMYCIN
     Indication: Netherton^s syndrome
     Dosage: UNK
     Route: 065
  3. CLINDAMYCIN [Suspect]
     Active Substance: CLINDAMYCIN
     Indication: Netherton^s syndrome
     Dosage: UNK
     Route: 065
  4. DOXYCYCLINE [Suspect]
     Active Substance: DOXYCYCLINE
     Indication: Netherton^s syndrome
     Dosage: UNK
     Route: 065
  5. DESLORATADINE [Suspect]
     Active Substance: DESLORATADINE
     Indication: Netherton^s syndrome
     Dosage: UNK
     Route: 065
  6. PREDNISONE [Suspect]
     Active Substance: PREDNISONE
     Indication: Netherton^s syndrome
     Dosage: UNK
     Route: 065
  7. EMOLLIENTS [Suspect]
     Active Substance: EMOLLIENTS
     Indication: Netherton^s syndrome
     Dosage: UNK
     Route: 065
  8. PIMECROLIMUS [Suspect]
     Active Substance: PIMECROLIMUS
     Indication: Netherton^s syndrome
     Dosage: UNK
     Route: 065
  9. SILVER SULFADIAZINE [Suspect]
     Active Substance: SILVER SULFADIAZINE
     Indication: Netherton^s syndrome
     Dosage: UNK
     Route: 065
  10. ZINCOXIDE [Suspect]
     Active Substance: ZINC OXIDE
     Indication: Netherton^s syndrome
     Dosage: UNK
     Route: 065

REACTIONS (1)
  - Therapy non-responder [Unknown]
